FAERS Safety Report 8784943 (Version 2)
Quarter: 2012Q4

REPORT INFORMATION
  Report Type: 
  Country: RU (occurrence: RU)
  Receive Date: 20120914
  Receipt Date: 20121015
  Transmission Date: 20130627
  Serious: Yes (Hospitalization)
  Sender: FDA-Public Use
  Company Number: RU-BAYER-2012-093193

PATIENT
  Age: 32 Year
  Sex: Female
  Weight: 69.84 kg

DRUGS (1)
  1. MIRENA [Suspect]
     Indication: CONTRACEPTION
     Dosage: 20 mcg/24hr, CONT
     Route: 015
     Dates: start: 20090527, end: 20120802

REACTIONS (3)
  - Carcinoma in situ [Not Recovered/Not Resolved]
  - Uterine cervical erosion [Not Recovered/Not Resolved]
  - Cervical friability [Not Recovered/Not Resolved]
